FAERS Safety Report 16625074 (Version 2)
Quarter: 2019Q3

REPORT INFORMATION
  Report Type: Spontaneous
  Country: US (occurrence: US)
  Receive Date: 20190724
  Receipt Date: 20190729
  Transmission Date: 20191004
  Serious: Yes (Other)
  Sender: FDA-Public Use
  Company Number: US-PFIZER INC-2019310224

PATIENT
  Age: 52 Year
  Sex: Male

DRUGS (1)
  1. OXALIPLATIN. [Suspect]
     Active Substance: OXALIPLATIN
     Indication: HAEMANGIOPERICYTOMA
     Dosage: 135 MG/M2, CYCLIC (TWO CYCLES)

REACTIONS (2)
  - Tunnel vision [Recovered/Resolved]
  - Ocular toxicity [Recovered/Resolved]
